FAERS Safety Report 10022730 (Version 1)
Quarter: 2014Q1

REPORT INFORMATION
  Report Type: Spontaneous
  Country: TR (occurrence: TR)
  Receive Date: 20140319
  Receipt Date: 20140319
  Transmission Date: 20141002
  Serious: Yes (Other)
  Sender: FDA-Public Use
  Company Number: TR-B.I. PHARMACEUTICALS,INC./RIDGEFIELD-2014-BI-12057GD

PATIENT
  Age: 43 Year
  Sex: Male

DRUGS (3)
  1. RANITIDINE [Suspect]
     Indication: GASTRIC ULCER
     Dosage: 50 MG
     Route: 065
  2. ZIPRASIDONE [Suspect]
     Indication: SCHIZOPHRENIA
     Dosage: 40 MG OR 80 MG (2 DIFFERENT DOSES STATED IN THE TEXT)
     Route: 065
  3. METFORMIN [Suspect]
     Indication: TYPE 2 DIABETES MELLITUS
     Dosage: 2000 MG
     Route: 065
     Dates: start: 2006

REACTIONS (2)
  - Priapism [Recovered/Resolved]
  - Drug interaction [Recovered/Resolved]
